FAERS Safety Report 5306338-8 (Version None)
Quarter: 2007Q2

REPORT INFORMATION
  Report Type: 
  Country: None (occurrence: None)
  Receive Date: 20070424
  Receipt Date: 20070416
  Transmission Date: 20071010
  Serious: Yes (Other)
  Sender: FDA-Public Use
  Company Number: US-ELI_LILLY_AND_COMPANY-US200704003345

PATIENT
  Sex: Male

DRUGS (2)
  1. HUMULIN R [Suspect]
     Indication: DIABETES MELLITUS
     Dosage: AS NEEDED, SLIDING SCALE
     Dates: start: 20020101
  2. LANTUS [Concomitant]
     Indication: DIABETES MELLITUS

REACTIONS (4)
  - ACCIDENTAL OVERDOSE [None]
  - BLINDNESS [None]
  - DIABETIC RETINOPATHY [None]
  - WRONG DRUG ADMINISTERED [None]
